FAERS Safety Report 4765533-7 (Version None)
Quarter: 2005Q3

REPORT INFORMATION
  Report Type: 
  Country: None (occurrence: None)
  Receive Date: 20050908
  Receipt Date: 20050908
  Transmission Date: 20060218
  Serious: Yes (Life-Threatening, Disabling, Other)
  Sender: FDA-Public Use
  Company Number: None

PATIENT
  Sex: Male
  Weight: 81.6475 kg

DRUGS (3)
  1. OXYCONTIN [Suspect]
     Dosage: DAILY
  2. VICODIN [Suspect]
     Dosage: DAILY
  3. MORPHINE [Suspect]

REACTIONS (4)
  - ACCIDENT AT HOME [None]
  - DRUG DEPENDENCE [None]
  - PARENT-CHILD PROBLEM [None]
  - TOBACCO ABUSE [None]
